FAERS Safety Report 19564990 (Version 3)
Quarter: 2021Q4

REPORT INFORMATION
  Report Type: Spontaneous
  Country: JP (occurrence: JP)
  Receive Date: 20210714
  Receipt Date: 20211015
  Transmission Date: 20220303
  Serious: Yes (Other)
  Sender: FDA-Public Use
  Company Number: JP-002147023-NVSJ2021JP010458

PATIENT
  Age: 78 Year
  Sex: Female

DRUGS (8)
  1. RANIBIZUMAB [Suspect]
     Active Substance: RANIBIZUMAB
     Indication: Age-related macular degeneration
     Dosage: UNK (LEFT EYE)
     Route: 050
     Dates: start: 20200125, end: 20200125
  2. RANIBIZUMAB [Suspect]
     Active Substance: RANIBIZUMAB
     Dosage: UNK (LEFT EYE)
     Route: 050
     Dates: start: 20200226, end: 20200226
  3. RANIBIZUMAB [Suspect]
     Active Substance: RANIBIZUMAB
     Dosage: UNK (LEFT EYE)
     Route: 050
     Dates: start: 20200401, end: 20200401
  4. RANIBIZUMAB [Suspect]
     Active Substance: RANIBIZUMAB
     Dosage: UNK (LEFT EYE)
     Route: 050
     Dates: start: 20200527, end: 20200527
  5. BEOVU [Suspect]
     Active Substance: BROLUCIZUMAB-DBLL
     Indication: Age-related macular degeneration
     Dosage: 6 MG (LEFT EYE)
     Route: 050
     Dates: start: 20200728, end: 20200728
  6. BEOVU [Suspect]
     Active Substance: BROLUCIZUMAB-DBLL
     Dosage: 6 MG
     Route: 050
     Dates: start: 20200929, end: 20200929
  7. BEOVU [Suspect]
     Active Substance: BROLUCIZUMAB-DBLL
     Dosage: 6 MG
     Route: 031
     Dates: start: 20210121, end: 20210121
  8. BEOVU [Suspect]
     Active Substance: BROLUCIZUMAB-DBLL
     Dosage: 6 MG (RIGHT EYE)
     Route: 031
     Dates: start: 20210629, end: 20210629

REACTIONS (5)
  - Blindness unilateral [Unknown]
  - Blindness transient [Recovered/Resolved]
  - Disease progression [Unknown]
  - Age-related macular degeneration [Unknown]
  - Visual acuity reduced [Recovered/Resolved]

NARRATIVE: CASE EVENT DATE: 20200125
